FAERS Safety Report 6702268-5 (Version None)
Quarter: 2010Q2

REPORT INFORMATION
  Report Type: 
  Country: None (occurrence: None)
  Receive Date: 20100429
  Receipt Date: 20100427
  Transmission Date: 20101027
  Serious: Yes (Life-Threatening, Hospitalization, Other)
  Sender: FDA-Public Use
  Company Number: GB-ROXANE LABORATORIES, INC.-2010-RO-00472RO

PATIENT
  Age: 65 Year
  Sex: Male

DRUGS (6)
  1. AZATHIOPRINE [Suspect]
     Indication: CROHN'S DISEASE
     Dosage: 75 MG
  2. PREDNISOLONE [Suspect]
     Indication: CROHN'S DISEASE
     Dosage: 35 MG
  3. PENTASA [Suspect]
     Indication: CROHN'S DISEASE
     Dosage: 4 G
  4. ACYCLOVIR [Suspect]
     Indication: ANTI-INFECTIVE THERAPY
  5. ACTIVATED PROTEIN C [Suspect]
     Indication: SYSTEMIC INFLAMMATORY RESPONSE SYNDROME
  6. HYDROCORTISONE [Suspect]

REACTIONS (5)
  - HERPES SEPSIS [None]
  - IMMUNOSUPPRESSION [None]
  - PNEUMONIA HERPES VIRAL [None]
  - RESPIRATORY DISTRESS [None]
  - SEPTIC SHOCK [None]
